FAERS Safety Report 8831512 (Version 1)
Quarter: 2012Q4

REPORT INFORMATION
  Report Type: 
  Country: KR (occurrence: KR)
  Receive Date: 20121009
  Receipt Date: 20121009
  Transmission Date: 20130627
  Serious: Yes (Other)
  Sender: FDA-Public Use
  Company Number: KR-PFIZER INC-2012244024

PATIENT
  Age: 83 Year
  Sex: Male

DRUGS (6)
  1. FLUOROURACIL [Suspect]
     Indication: COLON CANCER STAGE III
     Dosage: 400 mg/m2, UNK
     Route: 040
  2. FLUOROURACIL [Suspect]
     Dosage: 600 mg/m2, day 1 and 2
     Route: 042
  3. FLUOROURACIL [Suspect]
     Dosage: 1500 mg, (1000mg/m2) daily
  4. FLUOROURACIL [Suspect]
     Dosage: 1.679 mg/m2, cumulative dose
     Route: 041
  5. LEUCOVORIN [Concomitant]
     Indication: COLON CANCER STAGE III
     Dosage: 200 mg/m2, UNK
     Route: 042
  6. OXALIPLATIN [Concomitant]
     Indication: COLON CANCER STAGE III
     Dosage: 85 mg/m2, day 1
     Route: 042

REACTIONS (1)
  - Arteriospasm coronary [Recovered/Resolved]
